FAERS Safety Report 6434809-X (Version None)
Quarter: 2009Q4

REPORT INFORMATION
  Report Type: 
  Country: None (occurrence: None)
  Receive Date: 20091109
  Receipt Date: 20091109
  Transmission Date: 20100525
  Serious: Yes (Life-Threatening, Other)
  Sender: FDA-Public Use
  Company Number: None

PATIENT
  Age: 25 Year
  Sex: Female
  Weight: 55.7924 kg

DRUGS (1)
  1. EFFEXOR [Suspect]
     Indication: DEPRESSION
     Dosage: 75MG 1 DAILY PO
     Route: 048
     Dates: start: 20091103, end: 20091105

REACTIONS (4)
  - ANXIETY [None]
  - DYSPNOEA [None]
  - INSOMNIA [None]
  - NERVOUSNESS [None]
